FAERS Safety Report 6969638-1 (Version None)
Quarter: 2010Q3

REPORT INFORMATION
  Report Type: 
  Country: None (occurrence: None)
  Receive Date: 20100908
  Receipt Date: 20100831
  Transmission Date: 20110219
  Serious: Yes (Other)
  Sender: FDA-Public Use
  Company Number: PHHO2010DE02003

PATIENT
  Sex: Female

DRUGS (7)
  1. ICL670A ICL+ [Suspect]
     Indication: IRON OVERLOAD
     Dosage: 1375 MG, QD
     Route: 048
     Dates: start: 20090708, end: 20100125
  2. AMLODIPINE [Concomitant]
  3. TORSEMIDE [Concomitant]
  4. METOCLOPRAMIDE [Concomitant]
  5. PANTOPRAZOLE SODIUM [Concomitant]
  6. ENALAPRIL [Concomitant]
  7. ALLOPURINOL [Concomitant]

REACTIONS (2)
  - ACUTE MYELOID LEUKAEMIA [None]
  - DISEASE PROGRESSION [None]
